FAERS Safety Report 9517961 (Version 4)
Quarter: 2014Q3

REPORT INFORMATION
  Report Type: Spontaneous
  Country: US (occurrence: US)
  Receive Date: 20130912
  Receipt Date: 20140910
  Transmission Date: 20150326
  Serious: No
  Sender: FDA-Public Use
  Company Number: US-PFIZER INC-2013262519

PATIENT
  Sex: Female

DRUGS (18)
  1. CHANTIX [Suspect]
     Active Substance: VARENICLINE TARTRATE
     Indication: SMOKING CESSATION THERAPY
     Dosage: 1 MG,  2X/DAY (1 AM 1 PM)
     Route: 048
     Dates: start: 20090310, end: 20140415
  2. CYMBALTA [Concomitant]
     Active Substance: DULOXETINE HYDROCHLORIDE
     Indication: DEPRESSION
     Dosage: 60 MG, 1X/DAY (EVERY MORNING)
  3. LASIX [Concomitant]
     Active Substance: FUROSEMIDE
     Indication: CARDIAC FAILURE CONGESTIVE
     Dosage: 10 MG, AS NEEDED
  4. ZOFRAN [Concomitant]
     Active Substance: ONDANSETRON HYDROCHLORIDE
     Indication: ABDOMINAL DISCOMFORT
     Dosage: 4 MG, AS NEEDED (4/6 HOURS)
  5. VITAMIN B12 [Concomitant]
     Active Substance: CYANOCOBALAMIN
     Dosage: UNK
     Route: 060
  6. DEXILANT [Concomitant]
     Active Substance: DEXLANSOPRAZOLE
     Indication: ABDOMINAL DISCOMFORT
     Dosage: 50 MG, 1X/DAY (EVERY MORNING)
  7. NITRO-SPRAY [Concomitant]
     Active Substance: ISOSORBIDE DINITRATE
     Indication: CHEST PAIN
     Dosage: UNK
  8. ZANTAC [Concomitant]
     Active Substance: RANITIDINE HYDROCHLORIDE
     Indication: ABDOMINAL DISCOMFORT
     Dosage: 150 MG, 1X/DAY (AT BED TIME)
  9. COUMADIN [Concomitant]
     Active Substance: WARFARIN SODIUM
     Dosage: 1X/DAY (AT NIGHT)
  10. AZELASTINE HYDROCHLORIDE. [Concomitant]
     Active Substance: AZELASTINE HYDROCHLORIDE
     Indication: RHINITIS ALLERGIC
     Dosage: 1 DF, 2X/DAY (ONE SPRAY EACH SIDE)
     Route: 045
  11. VENTOLIN [Concomitant]
     Active Substance: ALBUTEROL SULFATE
     Indication: DYSPNOEA
     Dosage: 2 DF, AS NEEDED (90 MCG)
  12. ALDACTONE [Concomitant]
     Active Substance: SPIRONOLACTONE
     Indication: CARDIAC FAILURE CONGESTIVE
     Dosage: 50 MG, UNK
  13. LIPITOR [Concomitant]
     Active Substance: ATORVASTATIN CALCIUM
     Indication: BLOOD CHOLESTEROL
     Dosage: 40 MG, 1X/DAY (AT BED TIME)
  14. COREG [Concomitant]
     Active Substance: CARVEDILOL
     Indication: CARDIAC DISORDER
     Dosage: 12.5 MG, 2X/DAY
  15. SPIRIVA [Concomitant]
     Active Substance: TIOTROPIUM BROMIDE MONOHYDRATE
     Dosage: 18 UG, 1X/DAY (EVERY MORNING)
  16. VITAMIN D 5000 [Concomitant]
     Dosage: UNK (1 PER WEEK)
  17. COUMADIN [Concomitant]
     Active Substance: WARFARIN SODIUM
     Indication: ANTICOAGULANT THERAPY
     Dosage: 5 MG, 1X/DAY (AT NIGHT)
  18. SEROQUEL [Concomitant]
     Active Substance: QUETIAPINE FUMARATE
     Indication: INSOMNIA
     Dosage: 100 MG, 1X/DAY (AT BED TIME)

REACTIONS (10)
  - Restlessness [Unknown]
  - Agitation [Unknown]
  - Disturbance in attention [Unknown]
  - Adjustment disorder [Unknown]
  - Restless legs syndrome [Unknown]
  - Insomnia [Unknown]
  - Nervousness [Unknown]
  - Emotional disorder [Unknown]
  - Pre-existing condition improved [Unknown]
  - Therapeutic response changed [Unknown]
